FAERS Safety Report 24928882 (Version 1)
Quarter: 2025Q1

REPORT INFORMATION
  Report Type: Spontaneous
  Country: US (occurrence: US)
  Receive Date: 20250205
  Receipt Date: 20250205
  Transmission Date: 20250409
  Serious: No
  Sender: pharmaAND
  Company Number: US-Pharmaand-2024000034

PATIENT
  Sex: Male

DRUGS (2)
  1. RUBRACA [Suspect]
     Active Substance: RUCAPARIB CAMSYLATE
     Indication: Prostate cancer metastatic
     Dosage: 250 MG TABLETS TWO IN MORNING AT 9:30 AM AND TWO TABLETS AT NIGHT 9:30 PM , TOTAL OF 500 MG
     Dates: start: 202204
  2. RUBRACA [Suspect]
     Active Substance: RUCAPARIB CAMSYLATE
     Indication: Hormone-refractory prostate cancer

REACTIONS (4)
  - Product dose omission issue [Unknown]
  - Hypersomnia [Unknown]
  - Prostatic specific antigen increased [Unknown]
  - Drug delivery system issue [Unknown]
